FAERS Safety Report 26102942 (Version 2)
Quarter: 2025Q4

REPORT INFORMATION
  Report Type: Report from Study
  Country: CN (occurrence: CN)
  Receive Date: 20251128
  Receipt Date: 20251211
  Transmission Date: 20260117
  Serious: Yes (Death)
  Sender: ABBVIE
  Company Number: CN-PFIZER INC-PV202500138516

PATIENT
  Age: 77 Year
  Sex: Male

DRUGS (1)
  1. AVIBACTAM\AZTREONAM [Suspect]
     Active Substance: AVIBACTAM\AZTREONAM
     Indication: Product used for unknown indication
     Dosage: 2 G, Q6H
     Route: 042
     Dates: start: 20250928

REACTIONS (1)
  - COVID-19 [Fatal]
